FAERS Safety Report 15916199 (Version 2)
Quarter: 2019Q1

REPORT INFORMATION
  Report Type: Spontaneous
  Country: IT (occurrence: IT)
  Receive Date: 20190204
  Receipt Date: 20190210
  Transmission Date: 20190417
  Serious: Yes (Hospitalization, Other)
  Sender: FDA-Public Use
  Company Number: PHHY2019IT022744

PATIENT
  Age: 14 Year
  Sex: Male

DRUGS (1)
  1. LEVOFLOXACIN. [Suspect]
     Active Substance: LEVOFLOXACIN
     Indication: RESPIRATORY TRACT INFECTION
     Dosage: 500 MG, QD
     Route: 065

REACTIONS (17)
  - Myalgia [Unknown]
  - Vision blurred [Unknown]
  - Visual impairment [Unknown]
  - Retinal vascular disorder [Unknown]
  - Ocular hyperaemia [Unknown]
  - Headache [Recovered/Resolved]
  - Arthralgia [Recovering/Resolving]
  - Extraocular muscle paresis [Unknown]
  - Idiopathic intracranial hypertension [Unknown]
  - Papilloedema [Recovered/Resolved]
  - Condition aggravated [Unknown]
  - Visual field defect [Unknown]
  - Somnolence [Recovering/Resolving]
  - VIth nerve paralysis [Recovered/Resolved]
  - Intracranial pressure increased [Unknown]
  - Eye movement disorder [Unknown]
  - Diplopia [Recovering/Resolving]
